FAERS Safety Report 5037775-7 (Version None)
Quarter: 2006Q2

REPORT INFORMATION
  Report Type: 
  Country: None (occurrence: None)
  Receive Date: 20060626
  Receipt Date: 20060616
  Transmission Date: 20061013
  Serious: Yes (Hospitalization)
  Sender: FDA-Public Use
  Company Number: 2006-06-1011

PATIENT
  Age: 53 Year
  Sex: Male

DRUGS (5)
  1. PEG-INTERFERON ALFA- 2B   REDIPEN [Suspect]
     Indication: HEPATITIS C
     Dosage: 150 MCG QWK SUBCUTANEOUS
     Route: 058
     Dates: start: 20060525
  2. RIBAVIRIN [Suspect]
     Indication: HEPATITIS C
     Dosage: ORAL
     Route: 048
     Dates: start: 20060525
  3. PROZAC [Concomitant]
  4. INSULIN INJECTABLE [Concomitant]
  5. PSORIASIS TREATMENTS [Concomitant]

REACTIONS (4)
  - DEHYDRATION [None]
  - DRUG INEFFECTIVE [None]
  - NAUSEA [None]
  - VOMITING [None]
